FAERS Safety Report 8910526 (Version 1)
Quarter: 2012Q4

REPORT INFORMATION
  Report Type: 
  Country: US (occurrence: US)
  Receive Date: 20121114
  Receipt Date: 20121114
  Transmission Date: 20130627
  Serious: No
  Sender: FDA-Public Use
  Company Number: US-009507513-1211USA000210

PATIENT
  Sex: Female

DRUGS (2)
  1. REMERON [Suspect]
     Indication: INSOMNIA
     Dosage: 15 mg, Unknown
     Route: 048
  2. ANTIMICROBIAL (UNSPECIFIED) [Concomitant]

REACTIONS (3)
  - Conjunctivitis [Recovering/Resolving]
  - Oropharyngeal pain [Recovering/Resolving]
  - Neck pain [Recovering/Resolving]
